FAERS Safety Report 24682522 (Version 2)
Quarter: 2024Q4

REPORT INFORMATION
  Report Type: Spontaneous
  Country: AU (occurrence: AU)
  Receive Date: 20241130
  Receipt Date: 20241202
  Transmission Date: 20250115
  Serious: Yes (Hospitalization)
  Sender: ABBVIE
  Company Number: AU-ABBVIE-6023243

PATIENT
  Sex: Female

DRUGS (1)
  1. HUMIRA [Suspect]
     Active Substance: ADALIMUMAB
     Indication: Product used for unknown indication
     Dosage: STORAGE CONDITIONS: INJECTIONS
     Route: 058

REACTIONS (4)
  - Urticaria [Unknown]
  - Nail operation [Unknown]
  - Food intolerance [Unknown]
  - Reaction to preservatives [Unknown]
